FAERS Safety Report 22179886 (Version 3)
Quarter: 2023Q2

REPORT INFORMATION
  Report Type: Spontaneous
  Country: US (occurrence: US)
  Receive Date: 20230406
  Receipt Date: 20230501
  Transmission Date: 20230722
  Serious: Yes (Other)
  Sender: FDA-Public Use
  Company Number: US-Vifor (International) Inc.-VIT-2023-01940

PATIENT
  Age: 29 Year
  Sex: Male
  Weight: 58.5 kg

DRUGS (2)
  1. MIRCERA [Suspect]
     Active Substance: METHOXY POLYETHYLENE GLYCOL-EPOETIN BETA
     Indication: Anaemia
     Dosage: FIRST DOSE
  2. MIRCERA [Suspect]
     Active Substance: METHOXY POLYETHYLENE GLYCOL-EPOETIN BETA
     Dosage: MIRCERA DOSE NUMBER: 17 AND DOSE CATEGORY: DOSES 16-20
     Route: 058
     Dates: start: 20230123, end: 20230123

REACTIONS (2)
  - Drug hypersensitivity [Recovered/Resolved]
  - Hypertension [Recovered/Resolved]

NARRATIVE: CASE EVENT DATE: 20230210
